FAERS Safety Report 23100416 (Version 1)
Quarter: 2023Q4

REPORT INFORMATION
  Report Type: Spontaneous
  Country: US (occurrence: None)
  Receive Date: 20231020
  Receipt Date: 20231020
  Transmission Date: 20240110
  Serious: Yes (Hospitalization)
  Sender: FDA-Public Use
  Company Number: None

PATIENT
  Age: 60 Year
  Sex: Male
  Weight: 84 kg

DRUGS (1)
  1. LITHIUM CARBONATE [Suspect]
     Active Substance: LITHIUM CARBONATE
     Dosage: FREQUENCY : AT BEDTIME;?
     Route: 048
     Dates: start: 20200716, end: 20230131

REACTIONS (14)
  - Decreased appetite [None]
  - Blood creatinine increased [None]
  - Diarrhoea [None]
  - Dizziness [None]
  - Hypotension [None]
  - Dysphemia [None]
  - Tremor [None]
  - Vomiting [None]
  - Asthenia [None]
  - Mental impairment [None]
  - Toxicity to various agents [None]
  - Urinary tract infection [None]
  - Acute kidney injury [None]
  - Suicide attempt [None]

NARRATIVE: CASE EVENT DATE: 20230130
